FAERS Safety Report 8964100 (Version 1)
Quarter: 2012Q4

REPORT INFORMATION
  Report Type: 
  Country: US (occurrence: US)
  Receive Date: 20121214
  Receipt Date: 20121214
  Transmission Date: 20130627
  Serious: No
  Sender: FDA-Public Use
  Company Number: US-009507513-1212USA005088

PATIENT
  Sex: Male
  Weight: 74.83 kg

DRUGS (2)
  1. PEG-INTRON [Suspect]
     Indication: HEPATITIS C
     Dosage: Redipen
     Dates: start: 20120116, end: 20120827
  2. RIBAVIRIN [Suspect]
     Indication: HEPATITIS C
     Dosage: UNK
     Dates: start: 20120116, end: 20120827

REACTIONS (7)
  - Appetite disorder [Unknown]
  - Weight decreased [Recovered/Resolved]
  - Blood glucose increased [Unknown]
  - Vision blurred [Unknown]
  - Hypoaesthesia [Unknown]
  - Abdominal pain [Unknown]
  - Dizziness [Unknown]
